FAERS Safety Report 16971621 (Version 1)
Quarter: 2019Q4

REPORT INFORMATION
  Report Type: Report from Study
  Country: US (occurrence: US)
  Receive Date: 20191029
  Receipt Date: 20191029
  Transmission Date: 20200122
  Serious: Yes (Hospitalization, Other)
  Sender: FDA-Public Use
  Company Number: US-JNJFOC-20190238737

PATIENT
  Age: 75 Year
  Sex: Male

DRUGS (15)
  1. IMBRUVICA [Suspect]
     Active Substance: IBRUTINIB
     Indication: THROMBOCYTOPENIA
     Dosage: 420 MG, QD
     Route: 048
     Dates: start: 20181111
  2. NORVASC [Concomitant]
     Active Substance: AMLODIPINE BESYLATE
  3. ALLOPURINOL. [Concomitant]
     Active Substance: ALLOPURINOL
  4. GLIMEPIRIDE. [Concomitant]
     Active Substance: GLIMEPIRIDE
  5. PRAVASTATIN SODIUM. [Concomitant]
     Active Substance: PRAVASTATIN SODIUM
  6. TORSEMIDE. [Concomitant]
     Active Substance: TORSEMIDE
  7. LABETALOL HCL [Concomitant]
     Active Substance: LABETALOL HYDROCHLORIDE
  8. IMBRUVICA [Suspect]
     Active Substance: IBRUTINIB
     Indication: CHRONIC LYMPHOCYTIC LEUKAEMIA
     Dosage: 420 MG, QD
     Route: 048
     Dates: start: 20181113
  9. IMBRUVICA [Suspect]
     Active Substance: IBRUTINIB
     Indication: COLON CANCER
     Dosage: 420 MG, QD
     Route: 048
     Dates: start: 20181114
  10. MULTIVITAMINS [Concomitant]
     Active Substance: VITAMINS
  11. FLUTICASONE PROPIONATE. [Concomitant]
     Active Substance: FLUTICASONE PROPIONATE
  12. POTASSIUM [Concomitant]
     Active Substance: POTASSIUM
  13. HYDROCHLOROTHIAZIDE. [Concomitant]
     Active Substance: HYDROCHLOROTHIAZIDE
  14. OMEGA 3                            /01333901/ [Concomitant]
     Active Substance: FISH OIL\TOCOPHEROL
  15. VITAMIN C [Concomitant]
     Active Substance: ASCORBIC ACID

REACTIONS (17)
  - Body temperature increased [Unknown]
  - Off label use [Unknown]
  - Weight increased [Recovered/Resolved]
  - Increased tendency to bruise [Unknown]
  - Thyroid disorder [Unknown]
  - Contusion [Unknown]
  - Abdominal distension [Unknown]
  - Blood glucose increased [Unknown]
  - Blood pressure increased [Unknown]
  - Rash macular [Unknown]
  - Atrial fibrillation [Unknown]
  - Flatulence [Unknown]
  - Fluid retention [Unknown]
  - Product use in unapproved indication [Unknown]
  - Neuropathy peripheral [Unknown]
  - Loss of consciousness [Unknown]
  - Heart rate decreased [Unknown]

NARRATIVE: CASE EVENT DATE: 201811
